FAERS Safety Report 6316343-0 (Version None)
Quarter: 2009Q3

REPORT INFORMATION
  Report Type: 
  Country: None (occurrence: None)
  Receive Date: 20090820
  Receipt Date: 20090814
  Transmission Date: 20100115
  Serious: Yes (Other)
  Sender: FDA-Public Use
  Company Number: A0802306A

PATIENT
  Sex: Female

DRUGS (2)
  1. LAMOTRIGINE [Suspect]
     Indication: MIGRAINE PROPHYLAXIS
     Route: 048
  2. MIGRAINE MEDICATION [Concomitant]

REACTIONS (1)
  - LUPUS-LIKE SYNDROME [None]
